FAERS Safety Report 14185987 (Version 1)
Quarter: 2017Q4

REPORT INFORMATION
  Report Type: Spontaneous
  Country: US (occurrence: None)
  Receive Date: 20171112
  Receipt Date: 20171112
  Transmission Date: 20180321
  Serious: No
  Sender: FDA-Public Use
  Company Number: None

PATIENT
  Sex: Male

DRUGS (1)
  1. HUMIRA [Suspect]
     Active Substance: ADALIMUMAB
     Indication: RHEUMATOID ARTHRITIS
     Dosage: 40MG (1 PEN)
     Route: 058
     Dates: end: 20170830

REACTIONS (5)
  - Ataxia [None]
  - Demyelination [None]
  - Fall [None]
  - Disorientation [None]
  - Asthenia [None]
